FAERS Safety Report 23562168 (Version 2)
Quarter: 2024Q1

REPORT INFORMATION
  Report Type: Spontaneous
  Country: US (occurrence: US)
  Receive Date: 20240226
  Receipt Date: 20240228
  Transmission Date: 20240410
  Serious: Yes (Hospitalization)
  Sender: FDA-Public Use
  Company Number: US-ABBVIE-5650360

PATIENT
  Sex: Male
  Weight: 147 kg

DRUGS (1)
  1. HUMIRA [Suspect]
     Active Substance: ADALIMUMAB
     Indication: Rheumatoid arthritis
     Dosage: FORM STRENGTH: 40MG
     Route: 058
     Dates: start: 2022

REACTIONS (13)
  - Staphylococcal infection [Recovering/Resolving]
  - Unevaluable event [Not Recovered/Not Resolved]
  - Arthralgia [Recovering/Resolving]
  - Blister [Not Recovered/Not Resolved]
  - Fungal infection [Not Recovered/Not Resolved]
  - Swelling [Not Recovered/Not Resolved]
  - Staphylococcal infection [Recovered/Resolved]
  - Rash [Not Recovered/Not Resolved]
  - Insomnia [Not Recovered/Not Resolved]
  - Dyspnoea [Not Recovered/Not Resolved]
  - Furuncle [Recovering/Resolving]
  - Dysstasia [Not Recovered/Not Resolved]
  - Drug hypersensitivity [Unknown]

NARRATIVE: CASE EVENT DATE: 20230101
